FAERS Safety Report 10676464 (Version 1)
Quarter: 2014Q4

REPORT INFORMATION
  Report Type: Spontaneous
  Country: US (occurrence: US)
  Receive Date: 20141226
  Receipt Date: 20141226
  Transmission Date: 20150529
  Serious: No
  Sender: FDA-Public Use
  Company Number: US-BAYER-2014-189094

PATIENT

DRUGS (1)
  1. GADAVIST [Suspect]
     Active Substance: GADOBUTROL
     Indication: NUCLEAR MAGNETIC RESONANCE IMAGING ABDOMINAL
     Dosage: 10 ML, OVER THE WEEKEND
     Route: 042
     Dates: start: 201412, end: 201412

REACTIONS (2)
  - Dyspnoea [Unknown]
  - Off label use [None]

NARRATIVE: CASE EVENT DATE: 201412
